FAERS Safety Report 14922284 (Version 1)
Quarter: 2018Q2

REPORT INFORMATION
  Report Type: Spontaneous
  Country: DE (occurrence: DE)
  Receive Date: 20180522
  Receipt Date: 20180522
  Transmission Date: 20180711
  Serious: Yes (Hospitalization)
  Sender: FDA-Public Use
  Company Number: DE-CONCORDIA PHARMACEUTICALS INC.-E2B_00011745

PATIENT
  Age: 61 Year
  Sex: Female
  Weight: 42 kg

DRUGS (13)
  1. DEKRISTOL [Concomitant]
     Active Substance: CHOLECALCIFEROL
     Dosage: 20000 IE, 1X/W?CHETL., WEICHKAPSELN
     Route: 048
  2. HUMIRA 40MG/0,8ML [Concomitant]
     Dosage: ALLE 14 TAGE, INJEKTIONS-/INFUSIONSL?SUNG
     Route: 058
  3. ERYFER 100 [Concomitant]
     Dosage: 100 MG, 1-0-1, TABLETTEN
     Route: 048
  4. PLEON [Concomitant]
     Dosage: 2-0-2, TABLETTEN
     Route: 048
  5. ENALAPRIL ABZ 5MG [Concomitant]
     Dosage: 5 MG, 1-0-1, TABLETTEN
     Route: 048
  6. FERINJECT [Concomitant]
     Active Substance: FERRIC CARBOXYMALTOSE
     Dosage: 50 MG, ALLE 4 WOCHEN, INJEKTIONS-/INFUSIONSL?SUNG
     Route: 042
  7. CIPROFLOXACIN. [Concomitant]
     Active Substance: CIPROFLOXACIN
     Dosage: 500 MG, 1-0-1, TABLETTEN
     Route: 048
  8. PANTOPRAZOL [Concomitant]
     Active Substance: PANTOPRAZOLE SODIUM
     Dosage: 40 MG, 1-0-1, TABLETTEN
     Route: 048
  9. PREDNISOLONE. [Suspect]
     Active Substance: PREDNISOLONE
     Dosage: 5 MG, 1-0-0, TABLETTEN
     Route: 048
  10. DOXEPIN-NEURAXPHARM [Concomitant]
     Dosage: 40 MG/ML, 0-0-0-10, TROPFEN
     Route: 048
  11. VITAMIN B12 1000 G INJECT [Concomitant]
     Dosage: 1000 ?G, ALLE 4 WOCHEN, INJEKTIONS-/INFUSIONSL?SUNG
     Route: 030
  12. NOVAMINSULFON [Concomitant]
     Active Substance: METAMIZOLE
     Dosage: 500 MG, 1-1-1-1, TABLETTEN
     Route: 048
  13. TILIDINE [Concomitant]
     Active Substance: TILIDINE
     Dosage: 50|4 MG, 1-0-1, TABLETTEN
     Route: 048

REACTIONS (2)
  - Urinary tract infection [Unknown]
  - Gastric ulcer [Unknown]
